FAERS Safety Report 5747260-2 (Version None)
Quarter: 2008Q2

REPORT INFORMATION
  Report Type: 
  Country: None (occurrence: None)
  Receive Date: 20080520
  Receipt Date: 20080502
  Transmission Date: 20081010
  Serious: Yes (Other)
  Sender: FDA-Public Use
  Company Number: STI-2008-01734

PATIENT
  Age: 43 Year
  Sex: Female

DRUGS (1)
  1. DUAC AKNE  GEL  (CLINDAMYCIN + BENZOYL PEROXIDE) [Suspect]
     Dosage: (1 IN 1 DAYS) TOPICAL
     Route: 061
     Dates: start: 20051107, end: 20051110

REACTIONS (4)
  - ANGIOEDEMA [None]
  - EYELID OEDEMA [None]
  - LIP OEDEMA [None]
  - SWELLING FACE [None]
